FAERS Safety Report 7732929-0 (Version None)
Quarter: 2011Q3

REPORT INFORMATION
  Report Type: 
  Country: None (occurrence: None)
  Receive Date: 20110907
  Receipt Date: 20110901
  Transmission Date: 20111222
  Serious: Yes (Other)
  Sender: FDA-Public Use
  Company Number: US-PFIZER INC-2011205180

PATIENT

DRUGS (1)
  1. DILANTIN [Suspect]
     Dosage: 50 MG
     Route: 048

REACTIONS (1)
  - CONVULSION [None]
